FAERS Safety Report 6305971-4 (Version None)
Quarter: 2009Q3

REPORT INFORMATION
  Report Type: 
  Country: None (occurrence: None)
  Receive Date: 20090810
  Receipt Date: 20090810
  Transmission Date: 20100115
  Serious: Yes (Other)
  Sender: FDA-Public Use
  Company Number: None

PATIENT

DRUGS (2)
  1. VANCOMYCIN [Suspect]
     Dosage: 1250-1500 MG EVERY 8 HOURS IV
     Route: 042
  2. VANCOMYCIN [Suspect]

REACTIONS (1)
  - DRUG LEVEL INCREASED [None]
